FAERS Safety Report 7919646-9 (Version None)
Quarter: 2011Q4

REPORT INFORMATION
  Report Type: 
  Country: None (occurrence: None)
  Receive Date: 20111117
  Receipt Date: 20111025
  Transmission Date: 20120403
  Serious: Yes (Other)
  Sender: FDA-Public Use
  Company Number: US-BAYER-2011-020335

PATIENT
  Age: 27 Year
  Sex: Female
  Weight: 88.435 kg

DRUGS (7)
  1. PRILOSEC [Concomitant]
  2. METFORMIN HCL [Concomitant]
  3. SPIRONOLACTONE [Concomitant]
  4. YASMIN [Suspect]
     Indication: ORAL CONTRACEPTION
     Dosage: UNK
     Route: 048
     Dates: start: 20060801, end: 20081101
  5. KARIVA [Concomitant]
  6. REQUIP [Concomitant]
     Dosage: UNK
  7. PREVPAC [Concomitant]

REACTIONS (7)
  - ANXIETY [None]
  - CHOLECYSTITIS CHRONIC [None]
  - ABDOMINAL PAIN [None]
  - GALLBLADDER NON-FUNCTIONING [None]
  - VOMITING [None]
  - NAUSEA [None]
  - BILIARY DYSKINESIA [None]
